FAERS Safety Report 16849483 (Version 1)
Quarter: 2019Q3

REPORT INFORMATION
  Report Type: Report from Study
  Country: DE (occurrence: DE)
  Receive Date: 20190925
  Receipt Date: 20190925
  Transmission Date: 20191005
  Serious: Yes (Other)
  Sender: FDA-Public Use
  Company Number: DE-AMGEN-DEUNI2019156151

PATIENT
  Age: 67 Year
  Sex: Male
  Weight: 51 kg

DRUGS (9)
  1. IRINOTECAN [Suspect]
     Active Substance: IRINOTECAN
     Dosage: 217 MILLIGRAM
     Route: 065
     Dates: start: 20190828
  2. IRINOTECAN [Suspect]
     Active Substance: IRINOTECAN
     Dosage: 323 MILLIGRAM
     Route: 065
     Dates: start: 20190703
  3. RAMIPRIL. [Concomitant]
     Active Substance: RAMIPRIL
     Indication: HYPERTENSION
     Dosage: 2.5 MILLIGRAM, QD
     Route: 048
  4. FOLINIC ACID [Suspect]
     Active Substance: LEUCOVORIN
     Indication: COLORECTAL CANCER METASTATIC
     Dosage: 644 MILLIGRAM
     Route: 065
     Dates: start: 20190508
  5. FLUOROURACIL. [Suspect]
     Active Substance: FLUOROURACIL
     Indication: COLORECTAL CANCER METASTATIC
     Dosage: 3606 MILLIGRAM
     Route: 042
     Dates: start: 20190508
  6. BISOPROLOL [Concomitant]
     Active Substance: BISOPROLOL
     Indication: HYPERTENSION
     Dosage: 1.25 MILLIGRAM, QD
     Route: 048
  7. IRINOTECAN [Suspect]
     Active Substance: IRINOTECAN
     Dosage: 232 MILLIGRAM
     Route: 065
     Dates: start: 20190522
  8. PANITUMUMAB [Suspect]
     Active Substance: PANITUMUMAB
     Indication: COLORECTAL CANCER METASTATIC
     Dosage: 324 MILLIGRAM
     Route: 042
     Dates: start: 20190508
  9. IRINOTECAN [Suspect]
     Active Substance: IRINOTECAN
     Indication: COLORECTAL CANCER METASTATIC
     Dosage: 231 MILLIGRAM
     Route: 065
     Dates: start: 20190508

REACTIONS (1)
  - Oculomucocutaneous syndrome [Recovering/Resolving]

NARRATIVE: CASE EVENT DATE: 20190810
